FAERS Safety Report 13227981 (Version 2)
Quarter: 2017Q1

REPORT INFORMATION
  Report Type: Report from Study
  Country: US (occurrence: US)
  Receive Date: 20170213
  Receipt Date: 20170329
  Transmission Date: 20170428
  Serious: Yes (Hospitalization)
  Sender: FDA-Public Use
  Company Number: PHHO2017US003006

PATIENT
  Age: 68 Year
  Sex: Male

DRUGS (11)
  1. DILTIAZEM. [Suspect]
     Active Substance: DILTIAZEM
     Indication: HYPERTENSION
     Dosage: 240 MG, QD
     Route: 048
     Dates: start: 20150415
  2. DILTIAZEM. [Suspect]
     Active Substance: DILTIAZEM
     Indication: ATRIAL FIBRILLATION
  3. BLINDED NO VACCINATION RECEIVED [Suspect]
     Active Substance: UNSPECIFIED INGREDIENT
     Indication: IMMUNISATION
     Dosage: .5 ML
     Route: 030
     Dates: start: 20160803, end: 20160803
  4. BLINDED FCC H5N1 TURKEY [Suspect]
     Active Substance: INFLUENZA VIRUS VACCINE
     Indication: IMMUNISATION
     Dosage: .5 ML
     Route: 030
     Dates: start: 20160803, end: 20160803
  5. BLINDED PLACEBO [Suspect]
     Active Substance: INVESTIGATIONAL PRODUCT
     Indication: IMMUNISATION
     Dosage: .5 ML
     Route: 030
     Dates: start: 20160803, end: 20160803
  6. HYDROCHLOROTHIAZIDE. [Suspect]
     Active Substance: HYDROCHLOROTHIAZIDE
     Indication: HYPERTENSION
     Dosage: 12.5 MG, QD
     Route: 048
     Dates: start: 20150415
  7. BLINDED FCC H5N1 TURKEY [Suspect]
     Active Substance: INFLUENZA VIRUS VACCINE
     Dosage: .5 ML
     Route: 030
     Dates: start: 20160824, end: 20160824
  8. BLINDED NO VACCINATION RECEIVED [Suspect]
     Active Substance: UNSPECIFIED INGREDIENT
     Dosage: .5 ML
     Route: 030
     Dates: start: 20160824, end: 20160824
  9. LISINOPRIL. [Suspect]
     Active Substance: LISINOPRIL
     Indication: HYPERTENSION
     Dosage: 2.5 MG, QD
     Route: 048
     Dates: start: 20160831
  10. BLINDED PLACEBO [Suspect]
     Active Substance: INVESTIGATIONAL PRODUCT
     Dosage: .5 ML
     Route: 030
     Dates: start: 20160824, end: 20160824
  11. ASPIRIN. [Concomitant]
     Active Substance: ASPIRIN
     Indication: CARDIOVASCULAR EVENT PROPHYLAXIS
     Dosage: 325 MG, QD
     Route: 048
     Dates: start: 20060903

REACTIONS (2)
  - Syncope [Recovered/Resolved]
  - Coccydynia [Recovered/Resolved]

NARRATIVE: CASE EVENT DATE: 20161208
